FAERS Safety Report 5529347-2 (Version None)
Quarter: 2007Q4

REPORT INFORMATION
  Report Type: 
  Country: None (occurrence: None)
  Receive Date: 20071129
  Receipt Date: 20071121
  Transmission Date: 20080405
  Serious: Yes (Hospitalization)
  Sender: FDA-Public Use
  Company Number: JP-BAYER-200710875BYL

PATIENT
  Age: 29 Year
  Sex: Female

DRUGS (1)
  1. SH T 00186 [Suspect]
     Indication: DYSMENORRHOEA
     Route: 048
     Dates: start: 20070917, end: 20071111

REACTIONS (2)
  - DECREASED APPETITE [None]
  - GASTROENTERITIS [None]
